FAERS Safety Report 10261660 (Version 1)
Quarter: 2014Q2

REPORT INFORMATION
  Report Type: Spontaneous
  Country: US (occurrence: None)
  Receive Date: 20140624
  Receipt Date: 20140624
  Transmission Date: 20141212
  Serious: No
  Sender: FDA-Public Use
  Company Number: None

PATIENT
  Age: 34 Year
  Sex: Female

DRUGS (1)
  1. XELJANZ 5 MG PFIZER [Suspect]
     Indication: RHEUMATOID ARTHRITIS
     Dosage: 1 TABLET, TWICE A DAY, BY MOUTH
     Route: 048
     Dates: start: 201402, end: 201406

REACTIONS (1)
  - Amenorrhoea [None]
